FAERS Safety Report 4668157-5 (Version None)
Quarter: 2005Q2

REPORT INFORMATION
  Report Type: 
  Country: None (occurrence: None)
  Receive Date: 20050523
  Receipt Date: 20040923
  Transmission Date: 20051028
  Serious: Yes (Other)
  Sender: FDA-Public Use
  Company Number: PHEH2004US10317

PATIENT
  Age: 57 Year
  Sex: Male

DRUGS (15)
  1. PAMIDRONATE DISODIUM [Suspect]
     Dates: start: 20020301, end: 20030301
  2. PAMIDRONATE DISODIUM [Suspect]
     Dosage: 1-2 TIMES
     Dates: start: 20040301
  3. ZOLEDRONATE [Suspect]
     Dosage: 4 MG, QMO
     Dates: start: 20030401, end: 20040301
  4. CYTOXAN [Concomitant]
  5. DEXAMETHASONE [Concomitant]
  6. ETOPOSIDE [Concomitant]
  7. CISPLATIN [Concomitant]
  8. CARMUSTINE [Concomitant]
  9. ETOPOSIDE [Concomitant]
  10. THALIDOMIDE [Concomitant]
     Dates: start: 20030101
  11. VELCADE [Concomitant]
  12. CITALOPRAM HYDROBROMIDE [Concomitant]
  13. LORAZEPAM [Concomitant]
  14. ALLOPURINOL [Concomitant]
  15. BORTEZOMIB [Concomitant]

REACTIONS (8)
  - BONE INFECTION [None]
  - IMPAIRED HEALING [None]
  - MALIGNANT NEOPLASM PROGRESSION [None]
  - NEUROPATHY [None]
  - ORAL SOFT TISSUE DISORDER [None]
  - OSTEONECROSIS [None]
  - TOOTH EXTRACTION [None]
  - WOUND DEBRIDEMENT [None]
